FAERS Safety Report 5149851-9 (Version None)
Quarter: 2006Q4

REPORT INFORMATION
  Report Type: 
  Country: None (occurrence: None)
  Receive Date: 20061108
  Receipt Date: 20061026
  Transmission Date: 20070319
  Serious: Yes (Hospitalization)
  Sender: FDA-Public Use
  Company Number: 2006131914

PATIENT

DRUGS (3)
  1. NORVASC [Suspect]
     Dosage: 5 MG
  2. PROCARDIA XL [Suspect]
     Dosage: 60 MG
  3. NEURONTIN [Suspect]
     Dosage: 900 MG (DAILY)

REACTIONS (2)
  - BLOOD DISORDER [None]
  - DYSKINESIA [None]
